FAERS Safety Report 6754950-1 (Version None)
Quarter: 2010Q2

REPORT INFORMATION
  Report Type: 
  Country: None (occurrence: None)
  Receive Date: 20100602
  Receipt Date: 20100520
  Transmission Date: 20101027
  Serious: Yes (Other)
  Sender: FDA-Public Use
  Company Number: 1000014120

PATIENT

DRUGS (1)
  1. ESCITALOPRAM [Suspect]
     Dosage: 10 MG,

REACTIONS (3)
  - ANXIETY [None]
  - MUSCLE TWITCHING [None]
  - PANIC ATTACK [None]
